FAERS Safety Report 11123769 (Version 1)
Quarter: 2015Q2

REPORT INFORMATION
  Report Type: Spontaneous
  Country: IT (occurrence: IT)
  Receive Date: 20150519
  Receipt Date: 20150519
  Transmission Date: 20150821
  Serious: Yes (Other)
  Sender: FDA-Public Use
  Company Number: IT-MYLANLABS-2015M1016558

PATIENT

DRUGS (4)
  1. PRAMIPEXOLE [Suspect]
     Active Substance: PRAMIPEXOLE
     Indication: PARKINSON^S DISEASE
     Dosage: 0.7MG QID, IR
     Route: 065
  2. LEVODOPA [Suspect]
     Active Substance: LEVODOPA
     Indication: PARKINSON^S DISEASE
     Dosage: 700 MG/DAY
     Route: 065
  3. LEVODOPA [Suspect]
     Active Substance: LEVODOPA
     Dosage: DOUBLED DOSES
     Route: 065
  4. PRAMIPEXOLE [Suspect]
     Active Substance: PRAMIPEXOLE
     Dosage: 3.15MG DAILY, ER
     Route: 065

REACTIONS (4)
  - Dopamine dysregulation syndrome [Not Recovered/Not Resolved]
  - Dyskinesia [Unknown]
  - Mood swings [Unknown]
  - Drug abuse [Not Recovered/Not Resolved]
